FAERS Safety Report 8262256-7 (Version None)
Quarter: 2012Q2

REPORT INFORMATION
  Report Type: 
  Country: None (occurrence: None)
  Receive Date: 20120402
  Receipt Date: 20120323
  Transmission Date: 20120825
  Serious: Yes (Other)
  Sender: FDA-Public Use
  Company Number: KR-2011-0993

PATIENT
  Age: 58 Year
  Sex: Female

DRUGS (1)
  1. VINORELBINE [Suspect]
     Indication: NON-SMALL CELL LUNG CANCER
     Dosage: 30 MG/M2 1 X WK IV
     Route: 042
     Dates: start: 19980901

REACTIONS (3)
  - HYPOAESTHESIA [None]
  - MYELOPATHY [None]
  - MUSCULAR WEAKNESS [None]
